FAERS Safety Report 20541588 (Version 1)
Quarter: 2022Q1

REPORT INFORMATION
  Report Type: Spontaneous
  Country: NL (occurrence: NL)
  Receive Date: 20220302
  Receipt Date: 20220302
  Transmission Date: 20220423
  Serious: Yes (Death)
  Sender: FDA-Public Use
  Company Number: NL-JNJFOC-20211042699

PATIENT
  Age: 23 Year
  Sex: Male
  Weight: 80 kg

DRUGS (12)
  1. FENTANYL [Suspect]
     Active Substance: FENTANYL
     Indication: Suicide attempt
     Dosage: TOTAL DOSE- 1310 G/HOUR- 39 PATCHES
     Route: 062
  2. FENTANYL [Suspect]
     Active Substance: FENTANYL
     Dosage: 24 PATCHES
     Route: 062
  3. FENTANYL [Suspect]
     Active Substance: FENTANYL
     Dosage: 3 PATCHES
     Route: 062
  4. FENTANYL [Suspect]
     Active Substance: FENTANYL
     Dosage: ONE PATCH
     Route: 062
  5. CETIRIZINE HYDROCHLORIDE [Suspect]
     Active Substance: CETIRIZINE HYDROCHLORIDE
     Indication: Product used for unknown indication
     Route: 065
  6. FENTANYL CITRATE [Suspect]
     Active Substance: FENTANYL CITRATE
     Indication: Suicide attempt
     Dosage: 30 TABLETS
     Route: 065
  7. COCAINE [Suspect]
     Active Substance: COCAINE
     Indication: Suicide attempt
     Route: 065
  8. ALPRAZOLAM [Suspect]
     Active Substance: ALPRAZOLAM
     Indication: Product used for unknown indication
     Route: 065
  9. LIDOCAINE [Suspect]
     Active Substance: LIDOCAINE
     Indication: Suicide attempt
     Route: 065
  10. ACETAMINOPHEN [Suspect]
     Active Substance: ACETAMINOPHEN
     Indication: Suicide attempt
     Route: 065
  11. BENZOYLECGONINE [Suspect]
     Active Substance: BENZOYLECGONINE
     Indication: Suicide attempt
     Route: 065
  12. ALCOHOL [Suspect]
     Active Substance: ALCOHOL
     Indication: Suicide attempt

REACTIONS (4)
  - Intentional overdose [Fatal]
  - Toxicity to various agents [Fatal]
  - Prescription drug used without a prescription [Fatal]
  - Drug abuse [Fatal]
